FAERS Safety Report 6928119-1 (Version None)
Quarter: 2010Q3

REPORT INFORMATION
  Report Type: 
  Country: None (occurrence: None)
  Receive Date: 20100817
  Receipt Date: 20100802
  Transmission Date: 20110219
  Serious: Yes (Other)
  Sender: FDA-Public Use
  Company Number: PHHY2010US53983

PATIENT
  Sex: Male

DRUGS (6)
  1. ZOMETA [Suspect]
  2. PROSCAR [Concomitant]
  3. CASODEX [Concomitant]
  4. VERSED [Concomitant]
  5. FENTANYL [Concomitant]
  6. INTEGRILIN [Concomitant]

REACTIONS (11)
  - ASTHENIA [None]
  - CHEST PAIN [None]
  - COUGH [None]
  - DEHYDRATION [None]
  - DIARRHOEA [None]
  - DYSPNOEA [None]
  - HYPERADRENALISM [None]
  - NAUSEA [None]
  - PAIN IN EXTREMITY [None]
  - RENAL CYST [None]
  - VOMITING [None]
